FAERS Safety Report 8335932-5 (Version None)
Quarter: 2012Q2

REPORT INFORMATION
  Report Type: 
  Country: None (occurrence: None)
  Receive Date: 20120504
  Receipt Date: 20120501
  Transmission Date: 20120825
  Serious: No
  Sender: FDA-Public Use
  Company Number: US-PFIZER INC-2012107099

PATIENT
  Age: 21 Year
  Sex: Male

DRUGS (2)
  1. CHANTIX [Suspect]
     Dosage: 1 MG, 2X/DAY
     Route: 048
  2. CHANTIX [Suspect]
     Indication: TOBACCO ABUSE
     Dosage: 0.5 MG, 1X/DAY
     Route: 048
     Dates: start: 20120301

REACTIONS (1)
  - INSOMNIA [None]
